FAERS Safety Report 14859608 (Version 4)
Quarter: 2019Q2

REPORT INFORMATION
  Report Type: Spontaneous
  Country: US (occurrence: US)
  Receive Date: 20180508
  Receipt Date: 20190611
  Transmission Date: 20190711
  Serious: No
  Sender: FDA-Public Use
  Company Number: US-PFIZER INC-2018182580

PATIENT
  Age: 68 Year
  Sex: Female
  Weight: 64 kg

DRUGS (3)
  1. CELECOXIB. [Suspect]
     Active Substance: CELECOXIB
     Indication: PAIN
  2. CELECOXIB. [Suspect]
     Active Substance: CELECOXIB
     Indication: ARTHRITIS
     Dosage: 400 MG, 1X/DAY (1 400 PER DAY)
  3. CELECOXIB. [Suspect]
     Active Substance: CELECOXIB
     Indication: BACK PAIN
     Dosage: UNK
     Dates: start: 20170627, end: 2017

REACTIONS (11)
  - Urticaria [Unknown]
  - Drug ineffective [Unknown]
  - Ear swelling [Unknown]
  - Ear deformity acquired [Unknown]
  - Intentional product misuse [Unknown]
  - Ear pain [Unknown]
  - Finger deformity [Unknown]
  - Mouth swelling [Recovered/Resolved]
  - Drug hypersensitivity [Recovering/Resolving]
  - Foot deformity [Unknown]
  - Discomfort [Unknown]

NARRATIVE: CASE EVENT DATE: 2017
